FAERS Safety Report 19032154 (Version 1)
Quarter: 2021Q1

REPORT INFORMATION
  Report Type: Spontaneous
  Country: US (occurrence: US)
  Receive Date: 20210319
  Receipt Date: 20210319
  Transmission Date: 20210420
  Serious: No
  Sender: FDA-Public Use
  Company Number: US-NANJING KING-FRIEND BIOCHEMICAL PHARMACEUTICAL CO. LTD.-2020NKF00076

PATIENT

DRUGS (1)
  1. ENOXAPARIN SODIUM. [Suspect]
     Active Substance: ENOXAPARIN SODIUM
     Dosage: UNK

REACTIONS (2)
  - Injury associated with device [Unknown]
  - Occupational exposure to product [Unknown]
